FAERS Safety Report 23159367 (Version 1)
Quarter: 2023Q4

REPORT INFORMATION
  Report Type: Spontaneous
  Country: US (occurrence: None)
  Receive Date: 20231107
  Receipt Date: 20231107
  Transmission Date: 20240110
  Serious: No
  Sender: FDA-Public Use
  Company Number: None

PATIENT
  Sex: Male
  Weight: 52.2 kg

DRUGS (1)
  1. LENVIMA [Suspect]
     Active Substance: LENVATINIB
     Indication: Hepatocellular carcinoma
     Dosage: FREQUENCY : DAILY;?
     Route: 048
     Dates: start: 20230927

REACTIONS (6)
  - Internal haemorrhage [None]
  - Transfusion [None]
  - Platelet transfusion [None]
  - Hypotension [None]
  - Purpura [None]
  - Full blood count abnormal [None]
